FAERS Safety Report 17510963 (Version 1)
Quarter: 2020Q1

REPORT INFORMATION
  Report Type: Spontaneous
  Country: US (occurrence: US)
  Receive Date: 20200306
  Receipt Date: 20200306
  Transmission Date: 20200409
  Serious: Yes (Other)
  Sender: FDA-Public Use
  Company Number: None

PATIENT
  Sex: Female

DRUGS (2)
  1. DULOXETINE HCL 30, 40, 60 MG [Suspect]
     Active Substance: DULOXETINE HYDROCHLORIDE
  2. TRAZODONE HCL 100 MG [Suspect]
     Active Substance: TRAZODONE HYDROCHLORIDE

REACTIONS (1)
  - Fatigue [None]
